FAERS Safety Report 7811389-5 (Version None)
Quarter: 2011Q4

REPORT INFORMATION
  Report Type: 
  Country: None (occurrence: None)
  Receive Date: 20111013
  Receipt Date: 20111007
  Transmission Date: 20120403
  Serious: Yes (Life-Threatening)
  Sender: FDA-Public Use
  Company Number: DE-PFIZER INC-2011240733

PATIENT
  Age: 82 Year
  Sex: Male

DRUGS (1)
  1. TORISEL [Suspect]
     Indication: METASTATIC RENAL CELL CARCINOMA
     Dosage: UNK
     Route: 042
     Dates: start: 20100215, end: 20100315

REACTIONS (4)
  - THROMBOCYTOPENIA [None]
  - DIARRHOEA [None]
  - BONE MARROW FAILURE [None]
  - FATIGUE [None]
